FAERS Safety Report 13653195 (Version 1)
Quarter: 2017Q2

REPORT INFORMATION
  Report Type: Spontaneous
  Country: US (occurrence: US)
  Receive Date: 20170614
  Receipt Date: 20170614
  Transmission Date: 20170830
  Serious: No
  Sender: FDA-Public Use
  Company Number: US-ROCHE-1136619

PATIENT
  Sex: Male
  Weight: 92 kg

DRUGS (6)
  1. OXALIPLATIN. [Suspect]
     Active Substance: OXALIPLATIN
     Indication: PRODUCT USED FOR UNKNOWN INDICATION
  2. PRILOSEC [Concomitant]
     Active Substance: OMEPRAZOLE MAGNESIUM
  3. DEXAMETHASONE. [Concomitant]
     Active Substance: DEXAMETHASONE
  4. OXYCODONE [Concomitant]
     Active Substance: OXYCODONE
  5. XELODA [Suspect]
     Active Substance: CAPECITABINE
     Indication: GASTRIC CANCER
     Route: 065
     Dates: start: 20120913
  6. ZOFRAN [Concomitant]
     Active Substance: ONDANSETRON HYDROCHLORIDE

REACTIONS (4)
  - Paraesthesia [Unknown]
  - Temperature intolerance [Unknown]
  - Respiratory disorder [Unknown]
  - Temperature intolerance [Recovered/Resolved]
